FAERS Safety Report 9159852 (Version 2)
Quarter: 2013Q1

REPORT INFORMATION
  Report Type: Spontaneous
  Country: US (occurrence: None)
  Receive Date: 20130219
  Receipt Date: 20130222
  Transmission Date: 20140127
  Serious: Yes (Hospitalization)
  Sender: FDA-Public Use
  Company Number: 2013-0702

PATIENT
  Age: 65 Year
  Sex: Female

DRUGS (1)
  1. SOMATULINE DEPOT INJECTION (SOMATULINE SR) (LANREOTIDE) (LANREOTIDE ACETATE) [Suspect]
     Indication: ACROMEGALY
     Dosage: (1 IN 1 M)
     Route: 058
     Dates: start: 201201

REACTIONS (9)
  - Vomiting [None]
  - Pain [None]
  - Back pain [None]
  - Abscess [None]
  - Injection site mass [None]
  - Injection site swelling [None]
  - Arthralgia [None]
  - Abdominal pain upper [None]
  - White blood cell count increased [None]
